FAERS Safety Report 8845313 (Version 1)
Quarter: 2012Q4

REPORT INFORMATION
  Report Type: Spontaneous
  Country: ES (occurrence: None)
  Receive Date: 20121015
  Receipt Date: 20121015
  Transmission Date: 20130627
  Serious: Yes (Hospitalization)
  Sender: FDA-Public Use
  Company Number: ES-INDICUS PHARMA-000026

PATIENT
  Age: 63 Year
  Sex: Male

DRUGS (1)
  1. METFORMIN HYDROCHLORIDE [Suspect]
     Indication: TYPE 2 DIABETES MELLITUS
     Dosage: 850.00-Mg-8.0Hour

REACTIONS (12)
  - Lactic acidosis [None]
  - Renal impairment [None]
  - Anuria [None]
  - Diarrhoea [None]
  - Dyspnoea [None]
  - Hyperkalaemia [None]
  - Metabolic acidosis [None]
  - Psychomotor hyperactivity [None]
  - Tachypnoea [None]
  - Hypotension [None]
  - Hypoventilation [None]
  - Haemodynamic instability [None]
